FAERS Safety Report 10210484 (Version 2)
Quarter: 2015Q1

REPORT INFORMATION
  Report Type: Report from Study
  Country: JP (occurrence: JP)
  Receive Date: 20140602
  Receipt Date: 20150109
  Transmission Date: 20150720
  Serious: Yes (Other)
  Sender: FDA-Public Use
  Company Number: JP-TAKEDA-2014TUS004320

PATIENT
  Age: 58 Year
  Sex: Male

DRUGS (5)
  1. DIOVAN [Concomitant]
     Active Substance: VALSARTAN
     Dosage: UNK
     Route: 048
     Dates: start: 20030403
  2. FEBUXOSTAT. [Suspect]
     Active Substance: FEBUXOSTAT
     Indication: HYPERURICAEMIA
     Dosage: UNK
     Route: 048
     Dates: start: 20121130
  3. DIART [Suspect]
     Active Substance: AZOSEMIDE
     Indication: CARDIAC FAILURE
     Dosage: UNK
     Route: 048
     Dates: start: 20130712
  4. ARTIST [Concomitant]
     Active Substance: CARVEDILOL
     Dosage: UNK
     Route: 048
     Dates: start: 20040722
  5. ADALAT [Concomitant]
     Active Substance: NIFEDIPINE
     Dosage: UNK
     Route: 048
     Dates: start: 20030403

REACTIONS (5)
  - Blood creatinine increased [Not Recovered/Not Resolved]
  - Protein urine present [Not Recovered/Not Resolved]
  - Blood urea increased [Not Recovered/Not Resolved]
  - Gamma-glutamyltransferase increased [Not Recovered/Not Resolved]
  - Cardiac failure [Recovering/Resolving]

NARRATIVE: CASE EVENT DATE: 20130711
